FAERS Safety Report 4922750-0 (Version None)
Quarter: 2006Q1

REPORT INFORMATION
  Report Type: 
  Country: None (occurrence: None)
  Receive Date: 20060224
  Receipt Date: 20051025
  Transmission Date: 20060701
  Serious: Yes (Hospitalization, Other)
  Sender: FDA-Public Use
  Company Number: US-MERCK-0510USA09021

PATIENT
  Age: 60 Year
  Sex: Female
  Weight: 69 kg

DRUGS (20)
  1. VIOXX [Suspect]
     Indication: BACK PAIN
     Route: 048
     Dates: start: 20010201, end: 20040914
  2. VIOXX [Suspect]
     Route: 048
     Dates: start: 20020101, end: 20030101
  3. CELEBREX [Concomitant]
     Route: 065
     Dates: start: 20001212, end: 20030527
  4. ZESTRIL [Concomitant]
     Route: 065
     Dates: start: 20020221, end: 20030909
  5. AMBIEN [Concomitant]
     Route: 065
     Dates: start: 20001212
  6. NASONEX [Concomitant]
     Route: 065
     Dates: start: 20031106, end: 20040430
  7. FIORICET TABLETS [Concomitant]
     Route: 065
     Dates: start: 20001212, end: 20040826
  8. PAXIL [Concomitant]
     Route: 065
     Dates: start: 20001212, end: 20041013
  9. CIPRO [Concomitant]
     Route: 065
     Dates: start: 20001212
  10. NORFLEX [Concomitant]
     Route: 065
     Dates: start: 20010209, end: 20030625
  11. NEURONTIN [Concomitant]
     Route: 065
     Dates: start: 20010221
  12. LIPITOR [Concomitant]
     Route: 065
     Dates: start: 20010313, end: 20030705
  13. AXOCET (ACETAMINOPHEN (+) BUTALBITAL) [Concomitant]
     Route: 065
     Dates: start: 20010815
  14. OXYCODONE [Concomitant]
     Route: 065
     Dates: start: 20010816, end: 20040914
  15. ZITHROMAX [Concomitant]
     Route: 065
     Dates: start: 20011128
  16. CLARITIN [Concomitant]
     Route: 065
     Dates: start: 20011227, end: 20030117
  17. LOPERAMID [Concomitant]
     Route: 065
     Dates: start: 20041101
  18. LISINOPRIL-BC [Concomitant]
     Route: 065
     Dates: start: 20020829
  19. ALTACE [Concomitant]
     Route: 065
     Dates: start: 20001212, end: 20030909
  20. [THERAPY UNSPECIFIED] [Concomitant]
     Route: 065
     Dates: start: 20030101

REACTIONS (7)
  - BLOOD CHOLESTEROL INCREASED [None]
  - BLOOD TRIGLYCERIDES INCREASED [None]
  - CEREBROVASCULAR ACCIDENT [None]
  - CHEST PAIN [None]
  - DEPRESSION [None]
  - EMOTIONAL DISTRESS [None]
  - HYPERTENSION [None]
